FAERS Safety Report 6483370-2 (Version None)
Quarter: 2009Q4

REPORT INFORMATION
  Report Type: 
  Country: None (occurrence: None)
  Receive Date: 20091209
  Receipt Date: 20090629
  Transmission Date: 20100525
  Serious: No
  Sender: FDA-Public Use
  Company Number: US-AMGEN-KDL344821

PATIENT
  Sex: Female

DRUGS (2)
  1. ENBREL [Suspect]
     Indication: PSORIASIS
     Route: 058
     Dates: start: 20060815
  2. ENBREL [Suspect]
     Indication: DRUG USE FOR UNKNOWN INDICATION

REACTIONS (10)
  - ARTHRITIS [None]
  - BACK PAIN [None]
  - BLOOD PRESSURE INCREASED [None]
  - COUGH [None]
  - EXOSTOSIS [None]
  - HYPERSENSITIVITY [None]
  - INSOMNIA [None]
  - MUSCULAR WEAKNESS [None]
  - PSORIASIS [None]
  - SINUS DISORDER [None]
